FAERS Safety Report 9669896 (Version 1)
Quarter: 2013Q4

REPORT INFORMATION
  Report Type: Spontaneous
  Country: US (occurrence: US)
  Receive Date: 20131105
  Receipt Date: 20131105
  Transmission Date: 20140711
  Serious: Yes (Other)
  Sender: FDA-Public Use
  Company Number: US-PFIZER INC-2013313049

PATIENT
  Age: 55 Year
  Sex: Female

DRUGS (3)
  1. PREGABALIN [Suspect]
     Dosage: 15 TABLETS (25MG)
     Route: 048
  2. GUAIFENESIN [Suspect]
     Dosage: 30 TABLETS
     Route: 048
     Dates: start: 1989
  3. PHENYLPROPANOLAMINE [Suspect]
     Dosage: 30 TABLETS
     Route: 048
     Dates: start: 1989

REACTIONS (6)
  - Intentional overdose [Unknown]
  - Torsade de pointes [Unknown]
  - Syncope [Unknown]
  - Blood pressure increased [Unknown]
  - Sinus bradycardia [Unknown]
  - Headache [Unknown]
